FAERS Safety Report 4927610-7 (Version None)
Quarter: 2006Q1

REPORT INFORMATION
  Report Type: 
  Country: None (occurrence: None)
  Receive Date: 20060228
  Receipt Date: 20051031
  Transmission Date: 20060701
  Serious: Yes (Hospitalization, Other)
  Sender: FDA-Public Use
  Company Number: US-MERCK-0511USA00314

PATIENT
  Age: 61 Year
  Sex: Female

DRUGS (11)
  1. VIOXX [Suspect]
     Route: 048
     Dates: start: 19990520, end: 20040930
  2. NITROGLYCERIN [Concomitant]
     Route: 065
  3. NITROGLYCERIN [Concomitant]
     Route: 065
  4. PREVACID [Concomitant]
     Indication: GASTROOESOPHAGEAL REFLUX DISEASE
     Route: 065
  5. ASPIRIN [Concomitant]
     Route: 065
  6. DETROL [Concomitant]
     Route: 065
  7. PAXIL [Concomitant]
     Route: 065
  8. NEURONTIN [Concomitant]
     Route: 065
  9. ESTAZOLAM [Concomitant]
     Route: 065
  10. LIPITOR [Concomitant]
     Indication: HYPERLIPIDAEMIA
     Route: 065
  11. ZESTRIL [Concomitant]
     Indication: HYPERTENSION
     Route: 065

REACTIONS (11)
  - ANGINA PECTORIS [None]
  - ARTERIAL OCCLUSIVE DISEASE [None]
  - CAROTID ARTERY DISEASE [None]
  - CAROTID ARTERY STENOSIS [None]
  - CEREBROVASCULAR ACCIDENT [None]
  - DRY MOUTH [None]
  - INCISION SITE COMPLICATION [None]
  - LYMPHADENOPATHY [None]
  - MYOCARDIAL INFARCTION [None]
  - OEDEMA PERIPHERAL [None]
  - PYREXIA [None]
